FAERS Safety Report 4868373-3 (Version None)
Quarter: 2005Q4

REPORT INFORMATION
  Report Type: 
  Country: None (occurrence: None)
  Receive Date: 20051229
  Receipt Date: 20051202
  Transmission Date: 20060501
  Serious: Yes (Life-Threatening, Hospitalization, Other)
  Sender: FDA-Public Use
  Company Number: CA-GLAXOSMITHKLINE-A0585603A

PATIENT
  Age: 83 Year
  Sex: Male

DRUGS (4)
  1. TIMENTIN [Suspect]
     Indication: PNEUMONIA
     Dosage: 3.1G FOUR TIMES PER DAY
     Route: 042
     Dates: start: 20051126, end: 20051130
  2. VANCOMYCIN [Concomitant]
     Indication: PNEUMONIA
     Dosage: 1000MG TWICE PER DAY
     Route: 042
  3. AZATHIOPRINE [Concomitant]
     Indication: MYASTHENIA GRAVIS
     Dosage: 50MG TWICE PER DAY
     Route: 048
     Dates: start: 20051101
  4. PYRIDOSTIGMINE BROMIDE [Concomitant]
     Indication: MYASTHENIA GRAVIS
     Dosage: 60MG FOUR TIMES PER DAY
     Route: 048
     Dates: start: 20051101

REACTIONS (1)
  - MUSCULAR WEAKNESS [None]
